FAERS Safety Report 11475329 (Version 1)
Quarter: 2015Q3

REPORT INFORMATION
  Report Type: Spontaneous
  Country: US (occurrence: None)
  Receive Date: 20150908
  Receipt Date: 20150908
  Transmission Date: 20151125
  Serious: Yes (Other)
  Sender: FDA-Public Use
  Company Number: None

PATIENT
  Age: 27 Year
  Sex: Female
  Weight: 57.61 kg

DRUGS (6)
  1. CONCERTA ER (GENERIC) [Concomitant]
  2. EFFEXOR XR EXTENDED-RELEASE [Concomitant]
     Active Substance: VENLAFAXINE HYDROCHLORIDE
  3. METHYLPHENIDATE ER 36 MG [Suspect]
     Active Substance: METHYLPHENIDATE
     Indication: ATTENTION DEFICIT/HYPERACTIVITY DISORDER
     Route: 048
     Dates: start: 20150816, end: 20150907
  4. LYSINE [Concomitant]
     Active Substance: LYSINE
  5. ELAVIL [Concomitant]
     Active Substance: AMITRIPTYLINE HYDROCHLORIDE
  6. KARIVA [Concomitant]
     Active Substance: DESOGESTREL\ETHINYL ESTRADIOL

REACTIONS (6)
  - Product formulation issue [None]
  - Impulsive behaviour [None]
  - Product substitution issue [None]
  - Product quality issue [None]
  - Irritability [None]
  - Mood swings [None]

NARRATIVE: CASE EVENT DATE: 20150816
